FAERS Safety Report 4747862-6 (Version None)
Quarter: 2005Q3

REPORT INFORMATION
  Report Type: 
  Country: None (occurrence: None)
  Receive Date: 20050817
  Receipt Date: 20050817
  Transmission Date: 20060218
  Serious: Yes (Other)
  Sender: FDA-Public Use
  Company Number: None

PATIENT
  Sex: Male

DRUGS (4)
  1. ARIPRIPRAZOLE [Suspect]
     Dosage: 10 MG ORAL
     Route: 048
     Dates: start: 20050418, end: 20050420
  2. SERTRALINE HCL [Concomitant]
  3. AUGMENTIN '125' [Concomitant]
  4. LORAZEPAM [Concomitant]

REACTIONS (2)
  - DYSPHAGIA [None]
  - MUSCULOSKELETAL STIFFNESS [None]
